FAERS Safety Report 5840636-4 (Version None)
Quarter: 2008Q3

REPORT INFORMATION
  Report Type: 
  Country: None (occurrence: None)
  Receive Date: 20080811
  Receipt Date: 20080804
  Transmission Date: 20090109
  Serious: Yes (Life-Threatening, Hospitalization)
  Sender: FDA-Public Use
  Company Number: FR-ASTRAZENECA-2008CG00788

PATIENT
  Age: 13885 Day
  Sex: Female

DRUGS (2)
  1. ENTOCORT EC [Suspect]
     Route: 048
     Dates: start: 20080315
  2. IMUREL [Suspect]
     Indication: CROHN'S DISEASE
     Route: 048
     Dates: start: 20080315, end: 20080421

REACTIONS (1)
  - BONE MARROW FAILURE [None]
